FAERS Safety Report 10686501 (Version 2)
Quarter: 2022Q2

REPORT INFORMATION
  Report Type: Other
  Country: US (occurrence: None)
  Receive Date: 20150101
  Receipt Date: 20220530
  Transmission Date: 20220720
  Serious: Yes (Hospitalization)
  Sender: FDA-Public Use
  Company Number: US-ROCHE-1516074

PATIENT
  Sex: Male

DRUGS (7)
  1. ERIVEDGE [Suspect]
     Active Substance: VISMODEGIB
     Indication: Basal cell carcinoma
     Route: 048
     Dates: start: 20141210
  2. ERIVEDGE [Suspect]
     Active Substance: VISMODEGIB
     Indication: Crohn^s disease
  3. ERIVEDGE [Suspect]
     Active Substance: VISMODEGIB
     Indication: Squamous cell carcinoma of skin
  4. MIDODRINE [Concomitant]
     Active Substance: MIDODRINE
  5. METHOCARBAMOL [Concomitant]
     Active Substance: METHOCARBAMOL
  6. XANAX [Concomitant]
     Active Substance: ALPRAZOLAM
  7. HUMIRA [Concomitant]
     Active Substance: ADALIMUMAB

REACTIONS (2)
  - Crohn^s disease [Unknown]
  - Muscle spasms [Unknown]
